FAERS Safety Report 5713569-1 (Version None)
Quarter: 2008Q2

REPORT INFORMATION
  Report Type: 
  Country: None (occurrence: None)
  Receive Date: 20080422
  Receipt Date: 20080407
  Transmission Date: 20081010
  Serious: Yes (Other)
  Sender: FDA-Public Use
  Company Number: US-GENENTECH-259447

PATIENT

DRUGS (4)
  1. AVASTIN [Suspect]
     Indication: MALIGNANT MELANOMA
     Dosage: 10 MG/KG, Q2W
     Route: 042
  2. LENALIDOMIDE [Suspect]
     Indication: MALIGNANT MELANOMA
     Dosage: 25 MG, QDX21
     Route: 048
  3. DEXAMETHASONE TAB [Suspect]
     Indication: MALIGNANT MELANOMA
     Dosage: 40 MG, 1/WEEK
     Route: 048
  4. ASPIRIN [Concomitant]
     Indication: DRUG USE FOR UNKNOWN INDICATION
     Dosage: 325 MG, QD
     Route: 048

REACTIONS (3)
  - ATRIAL FIBRILLATION [None]
  - DEEP VEIN THROMBOSIS [None]
  - DYSPNOEA [None]
